FAERS Safety Report 23271376 (Version 4)
Quarter: 2024Q3

REPORT INFORMATION
  Report Type: Report from Study
  Country: DE (occurrence: DE)
  Receive Date: 20231207
  Receipt Date: 20240725
  Transmission Date: 20241017
  Serious: Yes (Other)
  Sender: TAKEDA
  Company Number: DE-TAKEDA-2023TUS118050

PATIENT
  Age: 51 Year
  Sex: Female

DRUGS (24)
  1. TEDUGLUTIDE [Suspect]
     Active Substance: TEDUGLUTIDE
     Indication: Short-bowel syndrome
     Dosage: 1.55 MILLIGRAM, QD
     Route: 042
     Dates: start: 20171026, end: 20171129
  2. TEDUGLUTIDE [Suspect]
     Active Substance: TEDUGLUTIDE
     Indication: Short-bowel syndrome
     Dosage: 1.55 MILLIGRAM, QD
     Route: 042
     Dates: start: 20171026, end: 20171129
  3. TEDUGLUTIDE [Suspect]
     Active Substance: TEDUGLUTIDE
     Indication: Short-bowel syndrome
     Dosage: 1.55 MILLIGRAM, QD
     Route: 042
     Dates: start: 20171026, end: 20171129
  4. TEDUGLUTIDE [Suspect]
     Active Substance: TEDUGLUTIDE
     Indication: Short-bowel syndrome
     Dosage: 1.55 MILLIGRAM, QD
     Route: 042
     Dates: start: 20171026, end: 20171129
  5. TEDUGLUTIDE [Suspect]
     Active Substance: TEDUGLUTIDE
     Dosage: 1.6 MILLIGRAM, QD
     Route: 042
     Dates: start: 20171130, end: 20230921
  6. TEDUGLUTIDE [Suspect]
     Active Substance: TEDUGLUTIDE
     Dosage: 1.6 MILLIGRAM, QD
     Route: 042
     Dates: start: 20171130, end: 20230921
  7. TEDUGLUTIDE [Suspect]
     Active Substance: TEDUGLUTIDE
     Dosage: 1.6 MILLIGRAM, QD
     Route: 042
     Dates: start: 20171130, end: 20230921
  8. TEDUGLUTIDE [Suspect]
     Active Substance: TEDUGLUTIDE
     Dosage: 1.6 MILLIGRAM, QD
     Route: 042
     Dates: start: 20171130, end: 20230921
  9. TEDUGLUTIDE [Suspect]
     Active Substance: TEDUGLUTIDE
     Dosage: 1 MILLIGRAM, QD
     Route: 042
     Dates: start: 20230922
  10. TEDUGLUTIDE [Suspect]
     Active Substance: TEDUGLUTIDE
     Dosage: 1 MILLIGRAM, QD
     Route: 042
     Dates: start: 20230922
  11. TEDUGLUTIDE [Suspect]
     Active Substance: TEDUGLUTIDE
     Dosage: 1 MILLIGRAM, QD
     Route: 042
     Dates: start: 20230922
  12. TEDUGLUTIDE [Suspect]
     Active Substance: TEDUGLUTIDE
     Dosage: 1 MILLIGRAM, QD
     Route: 042
     Dates: start: 20230922
  13. PIPERACILLIN SODIUM\TAZOBACTAM SODIUM [Concomitant]
     Active Substance: PIPERACILLIN SODIUM\TAZOBACTAM SODIUM
     Dosage: 0.5 GRAM, BID
     Route: 042
     Dates: start: 20220331, end: 20220411
  14. CASPOFUNGIN [Concomitant]
     Active Substance: CASPOFUNGIN
     Indication: Device related infection
     Dosage: 50 MILLIGRAM, QD
     Route: 042
     Dates: start: 20220328, end: 20220411
  15. CASPOFUNGIN [Concomitant]
     Active Substance: CASPOFUNGIN
     Dosage: 70 MILLIGRAM, SINGLE
     Route: 042
     Dates: start: 20240714, end: 20240714
  16. MAGNESIUM CITRATE [Concomitant]
     Active Substance: MAGNESIUM CITRATE
     Indication: Magnesium deficiency
     Dosage: 100 MILLIGRAM, TID
     Route: 048
     Dates: start: 20220404
  17. ELECTROLYTES NOS\MINERALS [Concomitant]
     Active Substance: ELECTROLYTES NOS\MINERALS
     Indication: Nutritional supplementation
     Dosage: 10 MILLILITER, QD
     Route: 042
     Dates: start: 20200522
  18. KCL [Concomitant]
     Active Substance: POTASSIUM CHLORIDE
     Indication: Nutritional supplementation
     Dosage: 20 MILLILITER, QD
     Route: 042
     Dates: start: 20231221
  19. DALTEPARINUM NATRICUM [Concomitant]
     Indication: Prophylaxis
     Dosage: 0.5 MILLILITER, QD
     Route: 042
     Dates: start: 20231228
  20. MIRTAZAPINE [Concomitant]
     Active Substance: MIRTAZAPINE
     Indication: Euphoric mood
     Dosage: 15 MILLIGRAM, QD
     Route: 048
     Dates: start: 20231228
  21. MORPHINE [Concomitant]
     Active Substance: MORPHINE
     Indication: Faeces hard
     Dosage: 7 GTT DROPS, QID
     Route: 048
     Dates: start: 20231221
  22. AMBISOME [Concomitant]
     Active Substance: AMPHOTERICIN B
     Indication: Device related infection
     Dosage: 50 MILLIGRAM, QD
     Route: 042
     Dates: start: 20240715, end: 20240716
  23. MEROPENEM [Concomitant]
     Active Substance: MEROPENEM
     Indication: Device related infection
     Dosage: 500 MILLIGRAM, QD
     Route: 042
     Dates: start: 20240709, end: 20240716
  24. CEFTRIAXONE [Concomitant]
     Active Substance: CEFTRIAXONE\CEFTRIAXONE SODIUM
     Indication: Device related infection
     Dosage: 2 GRAM, SINGLE
     Route: 042
     Dates: start: 20240709, end: 20240709

REACTIONS (2)
  - Renal impairment [Recovered/Resolved with Sequelae]
  - COVID-19 [Recovered/Resolved]

NARRATIVE: CASE EVENT DATE: 20221101
